FAERS Safety Report 8548370-7 (Version None)
Quarter: 2012Q3

REPORT INFORMATION
  Report Type: 
  Country: None (occurrence: None)
  Receive Date: 20120730
  Receipt Date: 20120724
  Transmission Date: 20120928
  Serious: Yes (Hospitalization)
  Sender: FDA-Public Use
  Company Number: JP-JNJFOC-20120611606

PATIENT
  Sex: Female
  Weight: 42 kg

DRUGS (17)
  1. SIMPONI [Suspect]
     Route: 058
     Dates: start: 20111222
  2. PREDNISOLONE [Suspect]
     Indication: RHEUMATOID ARTHRITIS
     Route: 048
     Dates: start: 20120315
  3. DEPAS [Concomitant]
     Indication: PROPHYLAXIS
     Route: 048
  4. CEFAZOLIN SODIUM [Concomitant]
     Indication: PROPHYLAXIS
     Route: 048
  5. METHOTREXATE [Suspect]
     Route: 065
     Dates: start: 20120119, end: 20120411
  6. FOLIC ACID [Concomitant]
     Indication: PROPHYLAXIS
     Route: 048
  7. ISONIAZID [Concomitant]
     Indication: PROPHYLAXIS
     Route: 048
  8. SIMPONI [Suspect]
     Route: 058
     Dates: start: 20120412
  9. SIMPONI [Suspect]
     Route: 058
     Dates: start: 20120119
  10. SIMPONI [Suspect]
     Route: 058
     Dates: start: 20120216
  11. CLINORIL [Concomitant]
     Indication: RHEUMATOID ARTHRITIS
     Route: 048
  12. METHOTREXATE [Suspect]
     Route: 065
     Dates: start: 20120412, end: 20120510
  13. SIMPONI [Suspect]
     Indication: RHEUMATOID ARTHRITIS
     Route: 058
     Dates: start: 20120315
  14. METHOTREXATE [Suspect]
     Indication: RHEUMATOID ARTHRITIS
     Route: 065
     Dates: start: 20111006, end: 20120118
  15. PREDNISOLONE [Suspect]
     Route: 048
     Dates: end: 20120314
  16. KETOPROFEN [Concomitant]
     Indication: RHEUMATOID ARTHRITIS
     Route: 062
     Dates: end: 20120510
  17. FAMOTIDINE [Concomitant]
     Indication: PROPHYLAXIS
     Route: 048

REACTIONS (1)
  - PYELONEPHRITIS ACUTE [None]
